FAERS Safety Report 21222170 (Version 1)
Quarter: 2022Q3

REPORT INFORMATION
  Report Type: Spontaneous
  Country: US (occurrence: US)
  Receive Date: 20220817
  Receipt Date: 20220817
  Transmission Date: 20221026
  Serious: Yes (Other)
  Sender: FDA-Public Use
  Company Number: US-PFIZER INC-202200690086

PATIENT
  Age: 71 Year
  Sex: Female

DRUGS (4)
  1. IBRANCE [Suspect]
     Active Substance: PALBOCICLIB
     Indication: Metastases to bone
     Dosage: 75 MG, CYCLIC (1 TAB BY MOUTH FOR 21 DAYS, THEN STOP FOR 14 DAYS)
     Route: 048
  2. IBRANCE [Suspect]
     Active Substance: PALBOCICLIB
     Indication: Invasive breast carcinoma
  3. IBRANCE [Suspect]
     Active Substance: PALBOCICLIB
     Indication: Breast cancer metastatic
  4. LETROZOLE [Concomitant]
     Active Substance: LETROZOLE
     Dosage: UNK

REACTIONS (6)
  - Neutropenia [Unknown]
  - Off label use [Unknown]
  - Off label use [Unknown]
  - Anxiety [Unknown]
  - Musculoskeletal chest pain [Unknown]
  - Bone lesion [Unknown]

NARRATIVE: CASE EVENT DATE: 20200710
